FAERS Safety Report 25542945 (Version 4)
Quarter: 2025Q3

REPORT INFORMATION
  Report Type: Report from Study
  Country: US (occurrence: US)
  Receive Date: 20250711
  Receipt Date: 20250822
  Transmission Date: 20251021
  Serious: Yes (Other)
  Sender: ABBVIE
  Company Number: US-ABBVIE-6144533

PATIENT
  Age: 71 Year
  Sex: Female
  Weight: 90.718 kg

DRUGS (10)
  1. HUMIRA [Suspect]
     Active Substance: ADALIMUMAB
     Indication: Rheumatoid arthritis
     Dosage: FORM STRENGTH: 40 MILLIGRAM
     Route: 058
     Dates: start: 20240829
  2. HUMIRA [Suspect]
     Active Substance: ADALIMUMAB
     Route: 058
     Dates: start: 20240901
  3. HUMIRA [Suspect]
     Active Substance: ADALIMUMAB
     Route: 058
     Dates: start: 20240901
  4. TRAMADOL [Concomitant]
     Active Substance: TRAMADOL
     Indication: Product used for unknown indication
  5. PEPCID [Concomitant]
     Active Substance: FAMOTIDINE
     Indication: Product used for unknown indication
  6. PROTONIX [Concomitant]
     Active Substance: PANTOPRAZOLE SODIUM
     Indication: Product used for unknown indication
  7. LIPITOR [Concomitant]
     Active Substance: ATORVASTATIN CALCIUM
     Indication: Product used for unknown indication
  8. FOLIC ACID [Concomitant]
     Active Substance: FOLIC ACID
     Indication: Product used for unknown indication
  9. TRAZODONE [Concomitant]
     Active Substance: TRAZODONE HYDROCHLORIDE
     Indication: Product used for unknown indication
  10. LEVOTHYROXINE [Concomitant]
     Active Substance: LEVOTHYROXINE
     Indication: Product used for unknown indication

REACTIONS (17)
  - Heart failure with preserved ejection fraction [Not Recovered/Not Resolved]
  - Wheezing [Recovering/Resolving]
  - Rheumatoid arthritis [Recovering/Resolving]
  - Chest pain [Recovering/Resolving]
  - Heart rate increased [Not Recovered/Not Resolved]
  - Chest discomfort [Recovering/Resolving]
  - Drug ineffective [Recovering/Resolving]
  - Microangiopathy [Not Recovered/Not Resolved]
  - Bronchitis [Recovering/Resolving]
  - Dyspnoea [Not Recovered/Not Resolved]
  - Gait disturbance [Unknown]
  - Pain [Recovering/Resolving]
  - Thinking abnormal [Unknown]
  - Fibrin D dimer increased [Not Recovered/Not Resolved]
  - Lung diffusion test abnormal [Unknown]
  - Communication disorder [Unknown]
  - Dizziness [Unknown]

NARRATIVE: CASE EVENT DATE: 20240101
